FAERS Safety Report 7356519-7 (Version None)
Quarter: 2011Q1

REPORT INFORMATION
  Report Type: 
  Country: None (occurrence: None)
  Receive Date: 20110316
  Receipt Date: 20110302
  Transmission Date: 20110831
  Serious: Yes (Other)
  Sender: FDA-Public Use
  Company Number: PHHY2010CA86873

PATIENT
  Sex: Male

DRUGS (8)
  1. CLOZARIL [Suspect]
     Indication: SCHIZOPHRENIA
     Dosage: 400 MG DAILY
     Route: 048
     Dates: start: 20091005, end: 20110125
  2. RAMIPRIL [Concomitant]
  3. HABITROL [Concomitant]
  4. METFORMIN HCL [Concomitant]
  5. PROPRANOLOL [Concomitant]
  6. EZETROL [Concomitant]
  7. CLOPIXOL DEPOT [Concomitant]
  8. ASPIRIN [Concomitant]

REACTIONS (5)
  - ABNORMAL BEHAVIOUR [None]
  - SALIVARY HYPERSECRETION [None]
  - FEELING ABNORMAL [None]
  - DRUG INEFFECTIVE [None]
  - PSYCHIATRIC DECOMPENSATION [None]
